FAERS Safety Report 24317271 (Version 1)
Quarter: 2024Q3

REPORT INFORMATION
  Report Type: Spontaneous
  Country: KR (occurrence: None)
  Receive Date: 20240913
  Receipt Date: 20240913
  Transmission Date: 20241016
  Serious: Yes (Death)
  Sender: ASTRAZENECA
  Company Number: 2024A208385

PATIENT
  Age: 947 Month
  Sex: Male

DRUGS (4)
  1. IMFINZI [Suspect]
     Active Substance: DURVALUMAB
     Dates: start: 20240205
  2. IMFINZI [Suspect]
     Active Substance: DURVALUMAB
     Dates: start: 20240228
  3. IMFINZI [Suspect]
     Active Substance: DURVALUMAB
     Dates: start: 20240327
  4. IMFINZI [Suspect]
     Active Substance: DURVALUMAB
     Dates: start: 20240417

REACTIONS (1)
  - Hanging [Fatal]

NARRATIVE: CASE EVENT DATE: 20240502
